FAERS Safety Report 9215438 (Version 1)
Quarter: 2013Q2

REPORT INFORMATION
  Report Type: Report from Study
  Country: BR (occurrence: BR)
  Receive Date: 20130405
  Receipt Date: 20130405
  Transmission Date: 20140414
  Serious: Yes (Hospitalization)
  Sender: FDA-Public Use
  Company Number: BR-ABBOTT-13P-020-1073521-00

PATIENT
  Age: 30 Year
  Sex: Female
  Weight: 61 kg

DRUGS (6)
  1. HUMIRA [Suspect]
     Indication: RHEUMATOID ARTHRITIS
     Route: 058
     Dates: end: 201104
  2. HUMIRA [Suspect]
     Route: 058
     Dates: start: 201301
  3. UNKNOWN CORTICOID [Concomitant]
     Indication: RHEUMATOID ARTHRITIS
     Route: 048
     Dates: start: 1986
  4. FOLIC ACID [Concomitant]
     Indication: RHEUMATOID ARTHRITIS
     Dosage: THURSDAYS AND FRIDAYS
     Route: 048
     Dates: start: 201301
  5. PARACETAMOL [Concomitant]
     Indication: PAIN
     Route: 048
  6. UNSPECIFIED ANALGESIC [Concomitant]
     Indication: PAIN
     Dosage: AT NIGHT
     Dates: start: 20130224

REACTIONS (3)
  - Premature labour [Unknown]
  - Gastritis [Unknown]
  - Pain [Unknown]
